FAERS Safety Report 5246896-5 (Version None)
Quarter: 2007Q1

REPORT INFORMATION
  Report Type: 
  Country: None (occurrence: None)
  Receive Date: 20070226
  Receipt Date: 20070214
  Transmission Date: 20070707
  Serious: Yes (Other)
  Sender: FDA-Public Use
  Company Number: US-PFIZER INC-2007012167

PATIENT
  Age: 60 Year
  Sex: Male

DRUGS (16)
  1. NEURONTIN [Suspect]
  2. LYRICA [Suspect]
     Indication: PAIN IN EXTREMITY
     Route: 048
     Dates: start: 20061201, end: 20070101
  3. LYRICA [Suspect]
     Indication: NEUROPATHY
  4. GABAPENTIN [Suspect]
  5. VERAPAMIL [Concomitant]
     Route: 048
  6. ENALAPRIL MALEATE [Concomitant]
     Route: 048
  7. DIGOXIN [Concomitant]
     Route: 048
  8. LIPITOR [Concomitant]
  9. HYDROCHLOROTHIAZIDE [Concomitant]
  10. ACETYLSALICYLIC ACID SRT [Concomitant]
  11. PENTOXIFYLLINE [Concomitant]
  12. ZYBAN [Concomitant]
  13. ADVAIR DISKUS 100/50 [Concomitant]
  14. VICODIN [Concomitant]
  15. PEPCID [Concomitant]
  16. ALBUTEROL [Concomitant]

REACTIONS (3)
  - LIP SWELLING [None]
  - PHARYNGEAL OEDEMA [None]
  - SWOLLEN TONGUE [None]
